FAERS Safety Report 8194264-9 (Version None)
Quarter: 2012Q1

REPORT INFORMATION
  Report Type: 
  Country: None (occurrence: None)
  Receive Date: 20120308
  Receipt Date: 20120228
  Transmission Date: 20120608
  Serious: Yes (Other)
  Sender: FDA-Public Use
  Company Number: NL-JNJFOC-20120213644

PATIENT
  Sex: Female

DRUGS (7)
  1. TRAMADOL HCL [Concomitant]
  2. PANTOPRAZOLE [Concomitant]
  3. FRAXIPARINE [Suspect]
     Indication: ANTICOAGULANT THERAPY
     Dates: start: 20120215, end: 20120217
  4. ACETAMINOPHEN [Concomitant]
  5. ARCOXIA [Concomitant]
  6. RIVAROXABAN [Suspect]
     Indication: KNEE ARTHROPLASTY
     Route: 048
     Dates: start: 20120218, end: 20120221
  7. RIVAROXABAN [Suspect]
     Indication: THROMBOSIS PROPHYLAXIS
     Route: 048
     Dates: start: 20120218, end: 20120221

REACTIONS (1)
  - DEEP VEIN THROMBOSIS [None]
